FAERS Safety Report 25855143 (Version 1)
Quarter: 2025Q3

REPORT INFORMATION
  Report Type: Spontaneous
  Country: US (occurrence: US)
  Receive Date: 20250927
  Receipt Date: 20250927
  Transmission Date: 20251021
  Serious: No
  Sender: ALEXION PHARMACEUTICALS
  Company Number: US-AstraZeneca-CH-00958168A

PATIENT

DRUGS (1)
  1. BRILINTA [Suspect]
     Active Substance: TICAGRELOR
     Route: 065

REACTIONS (6)
  - Diarrhoea [Unknown]
  - Fatigue [Unknown]
  - Pain [Unknown]
  - Dyspnoea [Unknown]
  - Abdominal pain upper [Unknown]
  - Constipation [Unknown]
